FAERS Safety Report 5218277-1 (Version None)
Quarter: 2007Q1

REPORT INFORMATION
  Report Type: 
  Country: None (occurrence: None)
  Receive Date: 20070124
  Receipt Date: 20070112
  Transmission Date: 20070707
  Serious: Yes (Hospitalization)
  Sender: FDA-Public Use
  Company Number: PL-PFIZER INC-2006144178

PATIENT
  Sex: Male
  Weight: 107 kg

DRUGS (8)
  1. SU-011,248 [Suspect]
     Indication: RENAL CELL CARCINOMA STAGE UNSPECIFIED
     Route: 048
     Dates: start: 20061004, end: 20061031
  2. CILAZAPRIL [Concomitant]
     Route: 048
  3. DOPEGYT [Concomitant]
     Route: 048
  4. BISOCARD [Concomitant]
     Route: 048
  5. FUROSEMIDE [Concomitant]
     Route: 048
  6. KALDYUM [Concomitant]
     Route: 048
  7. CARDURA [Concomitant]
     Route: 048
  8. METOCLOPRAMIDE [Concomitant]
     Route: 048

REACTIONS (3)
  - ASTHENIA [None]
  - FACE OEDEMA [None]
  - OEDEMA PERIPHERAL [None]
